FAERS Safety Report 5369419-9 (Version None)
Quarter: 2007Q2

REPORT INFORMATION
  Report Type: 
  Country: None (occurrence: None)
  Receive Date: 20070625
  Receipt Date: 20070619
  Transmission Date: 20071010
  Serious: Yes (Hospitalization)
  Sender: FDA-Public Use
  Company Number: JP-ELI_LILLY_AND_COMPANY-JP200706004331

PATIENT
  Age: 57 Year
  Sex: Male

DRUGS (2)
  1. KEFRAL [Suspect]
     Indication: TOOTH INFECTION
     Dosage: UNK, UNKNOWN
     Route: 048
  2. MEFENAMIC ACID [Concomitant]
     Indication: TOOTH INFECTION
     Dosage: UNK, UNKNOWN
     Route: 048

REACTIONS (5)
  - EMPHYSEMATOUS CHOLECYSTITIS [None]
  - HAEMODIALYSIS [None]
  - LYMPHOCYTE STIMULATION TEST POSITIVE [None]
  - PERITONITIS [None]
  - THROMBOTIC THROMBOCYTOPENIC PURPURA [None]
